FAERS Safety Report 4658111-1 (Version None)
Quarter: 2005Q2

REPORT INFORMATION
  Report Type: 
  Country: None (occurrence: None)
  Receive Date: 20050509
  Receipt Date: 20050425
  Transmission Date: 20051028
  Serious: Yes (Death)
  Sender: FDA-Public Use
  Company Number: 2005-00875

PATIENT
  Age: 80 Year
  Sex: Female

DRUGS (1)
  1. INTEGRILIN [Suspect]
     Dosage: INJECTION

REACTIONS (1)
  - INCORRECT DOSE ADMINISTERED [None]
